FAERS Safety Report 7293871-5 (Version None)
Quarter: 2011Q1

REPORT INFORMATION
  Report Type: 
  Country: None (occurrence: None)
  Receive Date: 20110202
  Receipt Date: 20110113
  Transmission Date: 20110831
  Serious: Yes (Hospitalization)
  Sender: FDA-Public Use
  Company Number: 012443

PATIENT
  Age: 77 Year
  Sex: Male

DRUGS (10)
  1. PROBUCOL [Suspect]
     Indication: ARTERIOSCLEROSIS CORONARY ARTERY
     Dosage: 500 MG, DAILY DOSE, ORAL
     Route: 048
     Dates: start: 20100617
  2. WARFARIN SODIUM [Concomitant]
  3. SIMVASTATIN [Concomitant]
  4. ASPIRIN [Concomitant]
  5. NATEDLINIDE [Concomitant]
  6. GLIMEPIRIDE [Concomitant]
  7. DIGOXIN [Concomitant]
  8. PLETAL [Suspect]
     Indication: ARTERIOSCLEROSIS CORONARY ARTERY
     Dosage: 200 MG, DAILY DOSE, ORAL
     Route: 048
     Dates: start: 20100617
  9. RENALMIN [Concomitant]
  10. CLOPIDOGREL [Concomitant]

REACTIONS (1)
  - CARDIAC FAILURE [None]
